FAERS Safety Report 20745057 (Version 1)
Quarter: 2022Q2

REPORT INFORMATION
  Report Type: Spontaneous
  Country: US (occurrence: None)
  Receive Date: 20220422
  Receipt Date: 20220422
  Transmission Date: 20220721
  Serious: Yes (Other)
  Sender: FDA-Public Use
  Company Number: None

PATIENT
  Age: 49 Year
  Sex: Female
  Weight: 90 kg

DRUGS (2)
  1. GAMMAKED [Suspect]
     Active Substance: HUMAN IMMUNOGLOBULIN G
     Indication: Chronic inflammatory demyelinating polyradiculoneuropathy
     Dosage: FREQUENCY : EVERY OTHER WEEK;?
     Route: 041
     Dates: start: 20220323, end: 20220420
  2. Gammaked 10% 200mL [Concomitant]
     Dates: start: 20220323, end: 20220420

REACTIONS (3)
  - Infusion related reaction [None]
  - Pruritus [None]
  - Blood pressure increased [None]

NARRATIVE: CASE EVENT DATE: 20220420
